FAERS Safety Report 8532689-X (Version None)
Quarter: 2012Q2

REPORT INFORMATION
  Report Type: 
  Country: None (occurrence: None)
  Receive Date: 20120412
  Receipt Date: 20091110
  Transmission Date: 20120825
  Serious: Yes (Other)
  Sender: FDA-Public Use
  Company Number: PHEH2009US13059

PATIENT
  Sex: Female

DRUGS (3)
  1. LAMICTAL [Concomitant]
  2. PROLOXIN DECANOATE (FLUPHENAZINE DECANOATE) [Concomitant]
  3. CLOZARIL [Suspect]
     Dosage: 400 MG, QD, ORAL, 300 MG, QHS, ORAL
     Route: 048
     Dates: start: 20090921, end: 20091004

REACTIONS (6)
  - FATIGUE [None]
  - ALTERED STATE OF CONSCIOUSNESS [None]
  - GRAND MAL CONVULSION [None]
  - TONIC CLONIC MOVEMENTS [None]
  - AMNESIA [None]
  - CONFUSIONAL STATE [None]
